FAERS Safety Report 17159175 (Version 1)
Quarter: 2019Q4

REPORT INFORMATION
  Report Type: Spontaneous
  Country: US (occurrence: US)
  Receive Date: 20191214
  Receipt Date: 20191214
  Transmission Date: 20200122
  Serious: Yes (Hospitalization)
  Sender: FDA-Public Use
  Company Number: None

PATIENT
  Age: 80 Year
  Sex: Male
  Weight: 80.3 kg

DRUGS (10)
  1. RIVAROXABAN [Suspect]
     Active Substance: RIVAROXABAN
     Indication: DEEP VEIN THROMBOSIS
     Route: 048
     Dates: start: 20150602
  2. LISINOPRIL 20MG DAILY [Concomitant]
  3. RISPERIDONE 0.5MG BID [Concomitant]
  4. TAMSULOSIN 0.4MG DAILY [Concomitant]
  5. AMLODIPINE 5MG DAILY [Concomitant]
  6. PANTOPRAZOLE 40MG BDI [Concomitant]
  7. TRAMADOL 50MG Q 6 HOURS PRN [Concomitant]
  8. FINASTERIDE 5MG DAILY [Concomitant]
  9. NEBIVOLOL 10MG DAILY [Concomitant]
  10. LACTULOSE 20G TID [Concomitant]

REACTIONS (5)
  - Confusional state [None]
  - Fall [None]
  - Anaemia [None]
  - Gastrointestinal haemorrhage [None]
  - Hypotension [None]

NARRATIVE: CASE EVENT DATE: 20160411
